FAERS Safety Report 5383822-2 (Version None)
Quarter: 2007Q3

REPORT INFORMATION
  Report Type: 
  Country: None (occurrence: None)
  Receive Date: 20070702
  Receipt Date: 20070523
  Transmission Date: 20080115
  Serious: No
  Sender: FDA-Public Use
  Company Number: 2007PV032963

PATIENT
  Age: 60 Year
  Sex: Female

DRUGS (1)
  1. SYMLIN [Suspect]
     Indication: TYPE 2 DIABETES MELLITUS
     Dosage: SC
     Route: 058

REACTIONS (7)
  - CELLULITIS [None]
  - CHILLS [None]
  - HYPERSENSITIVITY [None]
  - LETHARGY [None]
  - MALAISE [None]
  - PYREXIA [None]
  - RASH PRURITIC [None]
